FAERS Safety Report 8539464-0 (Version None)
Quarter: 2012Q3

REPORT INFORMATION
  Report Type: 
  Country: None (occurrence: None)
  Receive Date: 20120726
  Receipt Date: 20120718
  Transmission Date: 20120928
  Serious: Yes (Other)
  Sender: FDA-Public Use
  Company Number: CA-JNJFOC-20120205707

PATIENT
  Sex: Male
  Weight: 103 kg

DRUGS (5)
  1. FOLIC ACID [Concomitant]
     Route: 065
  2. ATIVAN [Concomitant]
     Route: 065
  3. METHOTREXATE [Concomitant]
     Indication: PSORIATIC ARTHROPATHY
     Route: 065
  4. NEXIUM [Concomitant]
     Route: 065
  5. REMICADE [Suspect]
     Indication: PSORIATIC ARTHROPATHY
     Route: 042
     Dates: start: 20101119

REACTIONS (1)
  - SALIVARY GLAND ENLARGEMENT [None]
